FAERS Safety Report 7114010-7 (Version None)
Quarter: 2010Q4

REPORT INFORMATION
  Report Type: 
  Country: None (occurrence: None)
  Receive Date: 20101119
  Receipt Date: 20101110
  Transmission Date: 20110411
  Serious: Yes (Life-Threatening, Hospitalization)
  Sender: FDA-Public Use
  Company Number: B0494707A

PATIENT
  Sex: Male

DRUGS (8)
  1. ZEFIX [Suspect]
     Indication: HEPATIC CIRRHOSIS
     Dosage: 100MG PER DAY
     Route: 048
     Dates: start: 20030119
  2. HEPSERA [Concomitant]
     Indication: HEPATIC CIRRHOSIS
     Dosage: 10MG PER DAY
     Route: 048
     Dates: start: 20050624
  3. SELBEX [Concomitant]
     Indication: PROPHYLAXIS
     Route: 048
  4. GASTER [Concomitant]
     Route: 048
  5. RIBOFLAVIN TAB [Concomitant]
     Route: 048
  6. AZUNOL [Concomitant]
     Indication: PROPHYLAXIS
     Route: 002
  7. PRIMPERAN [Concomitant]
     Indication: PROPHYLAXIS
     Route: 048
  8. LEVOFLOXACIN [Concomitant]
     Indication: PROPHYLAXIS
     Route: 048

REACTIONS (7)
  - ACUTE MYELOID LEUKAEMIA [None]
  - ANAEMIA [None]
  - BLOOD ALKALINE PHOSPHATASE INCREASED [None]
  - BRONCHOPULMONARY ASPERGILLOSIS [None]
  - HAEMOLYSIS [None]
  - PERNICIOUS ANAEMIA [None]
  - PLATELET COUNT DECREASED [None]
